FAERS Safety Report 7778342-1 (Version None)
Quarter: 2011Q3

REPORT INFORMATION
  Report Type: 
  Country: None (occurrence: None)
  Receive Date: 20110926
  Receipt Date: 20110913
  Transmission Date: 20111222
  Serious: Yes (Hospitalization)
  Sender: FDA-Public Use
  Company Number: US-BAYER-2011-012042

PATIENT
  Age: 32 Year
  Sex: Female
  Weight: 95.692 kg

DRUGS (2)
  1. YASMIN [Suspect]
     Indication: MENORRHAGIA
     Dosage: UNK
     Dates: start: 20090204, end: 20090321
  2. FERROUS SULFATE TAB [Concomitant]
     Indication: ANAEMIA
     Dosage: UNK
     Route: 048
     Dates: end: 20090101

REACTIONS (12)
  - FEAR [None]
  - PAIN [None]
  - NAUSEA [None]
  - PULMONARY EMBOLISM [None]
  - FATIGUE [None]
  - VOMITING [None]
  - CHEST DISCOMFORT [None]
  - DIARRHOEA [None]
  - ANXIETY [None]
  - DYSPNOEA [None]
  - EMOTIONAL DISTRESS [None]
  - CHEST PAIN [None]
